FAERS Safety Report 4476101-9 (Version None)
Quarter: 2004Q3

REPORT INFORMATION
  Report Type: 
  Country: None (occurrence: None)
  Receive Date: 20040923
  Receipt Date: 20040622
  Transmission Date: 20050211
  Serious: No
  Sender: FDA-Public Use
  Company Number: USA040670840

PATIENT
  Age: 74 Year
  Sex: Female

DRUGS (3)
  1. FORTEO [Suspect]
     Indication: COMPRESSION FRACTURE
  2. FORTEO [Suspect]
     Indication: MULTIPLE FRACTURES
  3. CALCIUM [Concomitant]

REACTIONS (4)
  - CHILLS [None]
  - FATIGUE [None]
  - NAUSEA [None]
  - TREMOR [None]
